FAERS Safety Report 7157501-5 (Version None)
Quarter: 2010Q4

REPORT INFORMATION
  Report Type: 
  Country: None (occurrence: None)
  Receive Date: 20101116
  Receipt Date: 20101102
  Transmission Date: 20110411
  Serious: Yes (Hospitalization, Other)
  Sender: FDA-Public Use
  Company Number: 2010PROUSA00104

PATIENT
  Age: 66 Year
  Sex: Male
  Weight: 97.3 kg

DRUGS (11)
  1. PROVENGE [Suspect]
     Indication: PROSTATE CANCER METASTATIC
     Dosage: 250 ML, SINGLE, INTRAVENOUS
     Route: 042
     Dates: start: 20101018, end: 20101018
  2. MELOXICAM (MELOXICAM) TABLET [Concomitant]
  3. FAMOTIDINE (FAMOTIDINE) TABLET [Concomitant]
  4. ATENOLOL [Concomitant]
  5. SIMVASTATIN [Concomitant]
  6. FENOFIBRATE (FENOFIBRATE) TABLET [Concomitant]
  7. VITAMIN D /00107901/ (ERGOCALCIFEROL) TABLET [Concomitant]
  8. OSCAL /00108001/ (CALCIUM CARBONATE) [Concomitant]
  9. BICALUTAMIDE [Concomitant]
  10. LEUPROLIDE ACETATE [Concomitant]
  11. LISINOPRIL W/HYDROCHLOROTHIAZIDE (HYDROCHLOROTHIAZIDE, LISINOPRIL) TAB [Concomitant]

REACTIONS (7)
  - ARTHRALGIA [None]
  - ATRIOVENTRICULAR BLOCK FIRST DEGREE [None]
  - FLANK PAIN [None]
  - MUSCLE SPASMS [None]
  - MUSCULOSKELETAL CHEST PAIN [None]
  - MYALGIA [None]
  - PLEURAL FIBROSIS [None]
